FAERS Safety Report 7623979-3 (Version None)
Quarter: 2011Q3

REPORT INFORMATION
  Report Type: 
  Country: None (occurrence: None)
  Receive Date: 20110720
  Receipt Date: 20110527
  Transmission Date: 20111222
  Serious: Yes (Other)
  Sender: FDA-Public Use
  Company Number: US-BRISTOL-MYERS SQUIBB COMPANY-15792773

PATIENT
  Age: 5 Decade

DRUGS (1)
  1. YERVOY [Suspect]
     Indication: METASTATIC MALIGNANT MELANOMA
     Dosage: 1DF= 3 MG/KG.

REACTIONS (3)
  - BLOOD BILIRUBIN INCREASED [None]
  - RASH PRURITIC [None]
  - DIARRHOEA [None]
